FAERS Safety Report 16209799 (Version 2)
Quarter: 2019Q2

REPORT INFORMATION
  Report Type: Spontaneous
  Country: JP (occurrence: JP)
  Receive Date: 20190417
  Receipt Date: 20190520
  Transmission Date: 20190711
  Serious: Yes (Hospitalization)
  Sender: FDA-Public Use
  Company Number: JP-BAUSCH-BL-2019-010174

PATIENT

DRUGS (1)
  1. MIKELAN OPHTHALMIC SOLUTION 1% [Suspect]
     Active Substance: CARTEOLOL HYDROCHLORIDE
     Indication: PRODUCT USED FOR UNKNOWN INDICATION
     Route: 047

REACTIONS (2)
  - Hypoglycaemia [Unknown]
  - Product administered to patient of inappropriate age [Unknown]
